FAERS Safety Report 8890838 (Version 3)
Quarter: 2012Q4

REPORT INFORMATION
  Report Type: 
  Country: JP (occurrence: JP)
  Receive Date: 20121107
  Receipt Date: 20121123
  Transmission Date: 20130627
  Serious: Yes (Death)
  Sender: FDA-Public Use
  Company Number: JP-ROCHE-1145453

PATIENT
  Age: 68 Year
  Sex: Male
  Weight: 68 kg

DRUGS (13)
  1. AVASTIN [Suspect]
     Indication: COLON CANCER METASTATIC
     Route: 041
     Dates: start: 20120618, end: 20120924
  2. AVASTIN [Suspect]
     Indication: COLON CANCER METASTATIC
  3. TS-1 [Suspect]
     Indication: COLON CANCER METASTATIC
     Route: 048
     Dates: start: 20120618
  4. TS-1 [Suspect]
     Indication: COLON CANCER METASTATIC
  5. IRINOTECAN HYDROCHLORIDE [Suspect]
     Indication: COLON CANCER METASTATIC
     Route: 041
     Dates: start: 20120618
  6. GLACTIV [Concomitant]
     Indication: DIABETES MELLITUS
     Route: 065
     Dates: start: 20110618, end: 20121003
  7. MAGLAX [Concomitant]
     Indication: CONSTIPATION
     Route: 065
     Dates: start: 20110707, end: 20121003
  8. HIRUDOID [Concomitant]
     Indication: RASH
     Dosage: Dosage is uncertain.
     Route: 062
     Dates: start: 20110724, end: 20121003
  9. REBAMIPIDE [Concomitant]
     Indication: PROPHYLAXIS
     Route: 065
     Dates: start: 20111018, end: 20121003
  10. PROMAC [Concomitant]
     Indication: PROPHYLAXIS
     Route: 065
     Dates: start: 20111219, end: 20121003
  11. DERMOVATE [Concomitant]
     Indication: RASH
     Dosage: Dosage is uncertain.
     Route: 062
     Dates: start: 20120208, end: 20121003
  12. ALLELOCK [Concomitant]
     Indication: RHINITIS ALLERGIC
     Route: 065
     Dates: start: 20120411, end: 20121003
  13. GLIMEPIRIDE [Concomitant]
     Indication: DIABETES MELLITUS
     Route: 065
     Dates: start: 20120514, end: 20121003

REACTIONS (2)
  - Small intestinal haemorrhage [Fatal]
  - Colon cancer metastatic [Fatal]
